FAERS Safety Report 9776522 (Version 2)
Quarter: 2014Q1

REPORT INFORMATION
  Report Type: Spontaneous
  Country: US (occurrence: US)
  Receive Date: 20131220
  Receipt Date: 20140318
  Transmission Date: 20141002
  Serious: Yes (Hospitalization, Other)
  Sender: FDA-Public Use
  Company Number: US-GILEAD-2013-0090257

PATIENT
  Sex: Female

DRUGS (4)
  1. LETAIRIS [Suspect]
     Indication: PRODUCT USED FOR UNKNOWN INDICATION
     Dosage: 10 MG, UNK
     Route: 048
     Dates: start: 20090916
  2. TYVASO [Concomitant]
  3. ADCIRCA [Concomitant]
  4. FLOLAN [Concomitant]

REACTIONS (3)
  - Cardiac arrest [Unknown]
  - Cardiac arrest [Unknown]
  - Dyspnoea [Unknown]
